FAERS Safety Report 7073482-7 (Version None)
Quarter: 2010Q4

REPORT INFORMATION
  Report Type: 
  Country: None (occurrence: None)
  Receive Date: 20101029
  Receipt Date: 20100708
  Transmission Date: 20110411
  Serious: No
  Sender: FDA-Public Use
  Company Number: A0866935A

PATIENT
  Age: 81 Year
  Sex: Male

DRUGS (19)
  1. ADVAIR DISKUS 100/50 [Suspect]
     Indication: CHRONIC OBSTRUCTIVE PULMONARY DISEASE
     Dosage: 2PUFF TWICE PER DAY
     Route: 055
     Dates: start: 20100621, end: 20100623
  2. CLONIDINE [Concomitant]
  3. FLUOXETINE [Concomitant]
  4. AMANTADINE [Concomitant]
  5. OMEPRAZOLE [Concomitant]
  6. FOLIC ACID [Concomitant]
  7. LEVOTHYROXINE [Concomitant]
  8. UNKNOWN MEDICATION [Concomitant]
  9. ARICEPT [Concomitant]
  10. CALCIUM [Concomitant]
  11. CLONAZEPAM [Concomitant]
  12. ASPIRIN [Concomitant]
  13. OXYGEN [Concomitant]
  14. STOOL SOFTENER [Concomitant]
  15. MIRALAX [Concomitant]
  16. COQ-10 [Concomitant]
  17. LIDODERM [Concomitant]
  18. SPIRIVA [Concomitant]
  19. ALBUTEROL INHALER [Concomitant]

REACTIONS (2)
  - CONDITION AGGRAVATED [None]
  - DYSPNOEA [None]
